FAERS Safety Report 8590632-1 (Version None)
Quarter: 2012Q3

REPORT INFORMATION
  Report Type: 
  Country: None (occurrence: None)
  Receive Date: 20120813
  Receipt Date: 20120808
  Transmission Date: 20120928
  Serious: No
  Sender: FDA-Public Use
  Company Number: US-PFIZER INC-2012194314

PATIENT
  Age: 69 Year
  Sex: Female

DRUGS (2)
  1. NEURONTIN [Suspect]
  2. NOVOCAIN [Suspect]

REACTIONS (1)
  - DRUG HYPERSENSITIVITY [None]
